FAERS Safety Report 13168146 (Version 4)
Quarter: 2017Q3

REPORT INFORMATION
  Report Type: Report from Study
  Country: CA (occurrence: CA)
  Receive Date: 20170131
  Receipt Date: 20170905
  Transmission Date: 20171127
  Serious: Yes (Other)
  Sender: FDA-Public Use
  Company Number: CA-GILEAD-2016-0251317

PATIENT
  Age: 56 Year
  Sex: Male

DRUGS (2)
  1. SOFOSBUVIR W/VELPATASVIR [Suspect]
     Active Substance: SOFOSBUVIR\VELPATASVIR
     Indication: CHRONIC HEPATITIS C
     Dosage: 1 DF, QD
     Route: 048
     Dates: start: 20161222
  2. IBAVYR [Suspect]
     Active Substance: RIBAVIRIN
     Indication: CHRONIC HEPATITIS C
     Dosage: 600 MG, BID
     Route: 048
     Dates: start: 20161222

REACTIONS (9)
  - Diarrhoea [Unknown]
  - Lower respiratory tract congestion [Unknown]
  - Hepatic lesion [Unknown]
  - Platelet transfusion [Unknown]
  - Cough [Unknown]
  - Nasopharyngitis [Unknown]
  - Nasopharyngitis [Unknown]
  - Hepatic pain [Unknown]
  - Abdominal discomfort [Unknown]

NARRATIVE: CASE EVENT DATE: 201702
